FAERS Safety Report 6667391-2 (Version None)
Quarter: 2010Q2

REPORT INFORMATION
  Report Type: 
  Country: None (occurrence: None)
  Receive Date: 20100405
  Receipt Date: 20100326
  Transmission Date: 20101027
  Serious: Yes (Other)
  Sender: FDA-Public Use
  Company Number: PHHY2009CA46148

PATIENT
  Sex: Female

DRUGS (5)
  1. EXJADE [Suspect]
     Indication: MYELODYSPLASTIC SYNDROME
     Dosage: 1000 MG, QD
     Route: 048
     Dates: start: 20080101
  2. EXJADE [Suspect]
     Dosage: UNK
     Route: 048
  3. MAXERAN [Concomitant]
     Dosage: UNK
  4. ELAVIL [Concomitant]
     Dosage: UNK
  5. TYLENOL-500 [Concomitant]
     Dosage: UNK

REACTIONS (5)
  - DRY MOUTH [None]
  - DYSPHAGIA [None]
  - GASTRIC POLYPS [None]
  - NAUSEA [None]
  - THROAT LESION [None]
